FAERS Safety Report 7589484-8 (Version None)
Quarter: 2011Q2

REPORT INFORMATION
  Report Type: 
  Country: None (occurrence: None)
  Receive Date: 20110627
  Receipt Date: 20110613
  Transmission Date: 20111010
  Serious: Yes (Hospitalization)
  Sender: FDA-Public Use
  Company Number: 2011AP001222

PATIENT
  Age: 43 Year
  Sex: Female

DRUGS (2)
  1. CANDESARTAN CILEXETIL [Concomitant]
  2. CITALOPRAM HYDROBROMIDE [Suspect]
     Dosage: 10MG 20 MG
     Dates: start: 20110407

REACTIONS (3)
  - AGITATION [None]
  - ACUTE PSYCHOSIS [None]
  - MALAISE [None]
